FAERS Safety Report 6781868-0 (Version None)
Quarter: 2010Q2

REPORT INFORMATION
  Report Type: 
  Country: None (occurrence: None)
  Receive Date: 20100618
  Receipt Date: 20100618
  Transmission Date: 20101027
  Serious: Yes (Other)
  Sender: FDA-Public Use
  Company Number: None

PATIENT
  Age: 35 Year
  Sex: Female
  Weight: 77.1115 kg

DRUGS (1)
  1. TYLENOL EXTRA STRENGTH RAPID REL 500 MG EACH MCNIEL [Suspect]
     Indication: HEADACHE
     Dosage: 1 CAPLET 1 TIME PO
     Route: 048
     Dates: start: 20100612, end: 20100612

REACTIONS (3)
  - DIZZINESS [None]
  - NAUSEA [None]
  - PRODUCT QUALITY ISSUE [None]
